FAERS Safety Report 5860719-2 (Version None)
Quarter: 2008Q3

REPORT INFORMATION
  Report Type: 
  Country: None (occurrence: None)
  Receive Date: 20080826
  Receipt Date: 20080812
  Transmission Date: 20090109
  Serious: Yes (Other)
  Sender: FDA-Public Use
  Company Number: SPV1-2008-01624

PATIENT
  Age: 45 Year
  Sex: Female
  Weight: 72.6 kg

DRUGS (2)
  1. VYVANSE [Suspect]
     Indication: ATTENTION DEFICIT/HYPERACTIVITY DISORDER
     Dosage: 30 MG, 1X/DAY:QD,ORAL, 50 MG, 1X/DAY:QD,ORAL, 70 MG, 1X/DAY:QD,ORAL, 80 MG, 1X/DAY:QD,ORAL
     Route: 048
     Dates: start: 20080701, end: 20080101
  2. WELLBUTRIN [Concomitant]

REACTIONS (26)
  - ABDOMINAL PAIN UPPER [None]
  - ACNE [None]
  - AMENORRHOEA [None]
  - ANGER [None]
  - ASTHENIA [None]
  - CONDITION AGGRAVATED [None]
  - DEPRESSED MOOD [None]
  - DIARRHOEA [None]
  - DRUG INEFFECTIVE [None]
  - FATIGUE [None]
  - FEAR [None]
  - FOOD CRAVING [None]
  - FORMICATION [None]
  - GASTROINTESTINAL SOUNDS ABNORMAL [None]
  - HALLUCINATIONS, MIXED [None]
  - HYPERSENSITIVITY [None]
  - INCREASED APPETITE [None]
  - NAUSEA [None]
  - OVERDOSE [None]
  - POST-TRAUMATIC STRESS DISORDER [None]
  - RASH [None]
  - SKIN DISCOLOURATION [None]
  - SOCIAL FEAR [None]
  - SUICIDAL IDEATION [None]
  - THERAPEUTIC RESPONSE UNEXPECTED [None]
  - WEIGHT INCREASED [None]
